FAERS Safety Report 22396031 (Version 1)
Quarter: 2023Q2

REPORT INFORMATION
  Report Type: Spontaneous
  Country: US (occurrence: US)
  Receive Date: 20230601
  Receipt Date: 20230601
  Transmission Date: 20230722
  Serious: No
  Sender: FDA-Public Use
  Company Number: US-APIL-2315674US

PATIENT
  Age: 49 Year
  Sex: Female

DRUGS (3)
  1. QULIPTA [Suspect]
     Active Substance: ATOGEPANT
     Indication: Rheumatoid arthritis
  2. QULIPTA [Suspect]
     Active Substance: ATOGEPANT
     Indication: Psoriasis
  3. QULIPTA [Suspect]
     Active Substance: ATOGEPANT
     Indication: Colitis ulcerative

REACTIONS (3)
  - Ankle fracture [Recovering/Resolving]
  - Fall [Recovered/Resolved]
  - Off label use [Unknown]

NARRATIVE: CASE EVENT DATE: 20230427
